FAERS Safety Report 6835396-4 (Version None)
Quarter: 2010Q3

REPORT INFORMATION
  Report Type: 
  Country: None (occurrence: None)
  Receive Date: 20100713
  Receipt Date: 20100701
  Transmission Date: 20110219
  Serious: Yes (Hospitalization, Other)
  Sender: FDA-Public Use
  Company Number: US-WYE-H15641410

PATIENT
  Sex: Female

DRUGS (6)
  1. PANTOPRAZOLE [Suspect]
     Dosage: UNKNOWN
  2. WARFARIN SODIUM [Concomitant]
     Dosage: UNKNOWN
  3. PREVACID [Suspect]
     Dosage: UNKNOWN
  4. AVAPRO [Concomitant]
     Dosage: UNKNOWN
  5. PROTONIX [Suspect]
     Dosage: UNKNOWN
  6. ACIPHEX [Suspect]
     Dosage: UNKNOWN

REACTIONS (10)
  - BLOOD SODIUM DECREASED [None]
  - BURNING SENSATION [None]
  - DRUG INEFFECTIVE [None]
  - FOREIGN BODY [None]
  - GLOSSODYNIA [None]
  - OEDEMA PERIPHERAL [None]
  - OESOPHAGEAL ULCER HAEMORRHAGE [None]
  - ORAL DISCOMFORT [None]
  - PRURITUS [None]
  - SOMNOLENCE [None]
